FAERS Safety Report 13036328 (Version 3)
Quarter: 2017Q2

REPORT INFORMATION
  Report Type: Spontaneous
  Country: US (occurrence: US)
  Receive Date: 20161216
  Receipt Date: 20170509
  Transmission Date: 20170830
  Serious: Yes (Hospitalization, Other)
  Sender: FDA-Public Use
  Company Number: US-009507513-1612USA008746

PATIENT
  Sex: Female
  Weight: 78.46 kg

DRUGS (1)
  1. NUVARING [Suspect]
     Active Substance: ETHINYL ESTRADIOL\ETONOGESTREL
     Indication: CONTRACEPTION
     Dosage: UNK, UNKNOWN
     Route: 067
     Dates: start: 201307, end: 20140108

REACTIONS (5)
  - Pulmonary embolism [Unknown]
  - Ligament operation [Unknown]
  - Menorrhagia [Unknown]
  - Irritable bowel syndrome [Unknown]
  - Iron deficiency [Unknown]

NARRATIVE: CASE EVENT DATE: 20140108
